FAERS Safety Report 8839613 (Version 1)
Quarter: 2012Q4

REPORT INFORMATION
  Report Type: 
  Country: PK (occurrence: PK)
  Receive Date: 20121015
  Receipt Date: 20121015
  Transmission Date: 20130627
  Serious: Yes (Other)
  Sender: FDA-Public Use
  Company Number: PHHY2012PK090839

PATIENT
  Sex: Male

DRUGS (2)
  1. GLIVEC [Suspect]
     Indication: CHRONIC MYELOID LEUKAEMIA
     Dosage: 600 mg, daily
     Route: 047
     Dates: start: 20030828, end: 20120628
  2. GLIVEC [Suspect]
     Dosage: 800 mg, daily
     Route: 048
     Dates: start: 20120629

REACTIONS (3)
  - Myelofibrosis [Unknown]
  - Splenomegaly [Not Recovered/Not Resolved]
  - Leukocytosis [Not Recovered/Not Resolved]
